FAERS Safety Report 12638382 (Version 1)
Quarter: 2016Q3

REPORT INFORMATION
  Report Type: Spontaneous
  Country: US (occurrence: US)
  Receive Date: 20160809
  Receipt Date: 20160809
  Transmission Date: 20161109
  Serious: No
  Sender: FDA-Public Use
  Company Number: US-SA-2016SA107867

PATIENT
  Sex: Male

DRUGS (12)
  1. ALFUZOSIN [Concomitant]
     Active Substance: ALFUZOSIN
  2. GLIPIZIDE. [Concomitant]
     Active Substance: GLIPIZIDE
  3. LOSARTAN POTASSIUM/HYDROCHLOROTHIAZIDE [Concomitant]
     Dosage: 100-25
  4. POLYETHYLENE GLYCOL [Concomitant]
     Active Substance: POLYETHYLENE GLYCOLS
     Dosage: PEG 3350 SOL ELECTROL
  5. ATENOLOL. [Concomitant]
     Active Substance: ATENOLOL
  6. CLOPIDOGREL [Concomitant]
     Active Substance: CLOPIDOGREL BISULFATE
  7. ERYTHROMYCIN. [Concomitant]
     Active Substance: ERYTHROMYCIN
  8. HYDRALAZINE [Concomitant]
     Active Substance: HYDRALAZINE HYDROCHLORIDE
  9. ALIROCUMAB PREFILLED PEN [Concomitant]
     Active Substance: ALIROCUMAB
  10. NEOMYCIN [Concomitant]
     Active Substance: NEOMYCIN
  11. PRALUENT [Suspect]
     Active Substance: ALIROCUMAB
     Route: 065
  12. AMLODIPINE [Concomitant]
     Active Substance: AMLODIPINE BESYLATE

REACTIONS (1)
  - Hypersensitivity [Recovered/Resolved]
